FAERS Safety Report 4400971-3 (Version None)
Quarter: 2004Q3

REPORT INFORMATION
  Report Type: 
  Country: None (occurrence: None)
  Receive Date: 20040714
  Receipt Date: 20040630
  Transmission Date: 20050211
  Serious: Yes (Other)
  Sender: FDA-Public Use
  Company Number: US_0407103993

PATIENT
  Age: 56 Year
  Sex: Female

DRUGS (1)
  1. RALOXIFENE HCL [Suspect]

REACTIONS (5)
  - HYPERTENSION [None]
  - POST PROCEDURAL HAEMORRHAGE [None]
  - RETINAL HAEMORRHAGE [None]
  - RETINAL VEIN OCCLUSION [None]
  - VISION BLURRED [None]
